FAERS Safety Report 8313782-3 (Version None)
Quarter: 2012Q2

REPORT INFORMATION
  Report Type: 
  Country: None (occurrence: None)
  Receive Date: 20120426
  Receipt Date: 20120423
  Transmission Date: 20120825
  Serious: Yes (Other)
  Sender: FDA-Public Use
  Company Number: DE-JNJFOC-20120408784

PATIENT

DRUGS (6)
  1. ADRIAMYCIN PFS [Suspect]
     Indication: SARCOMA
     Route: 042
  2. ETOPOSIDE [Suspect]
     Indication: SARCOMA
     Route: 042
  3. DOXORUBICIN HCL [Suspect]
     Indication: SARCOMA
     Route: 042
  4. PEGFILGRASTIM [Suspect]
     Indication: SARCOMA
     Route: 058
  5. IFOSFAMIDE [Suspect]
     Indication: SARCOMA
     Route: 042
  6. RADIATION THERAPY NOS [Suspect]
     Indication: SARCOMA
     Route: 065

REACTIONS (3)
  - FEBRILE NEUTROPENIA [None]
  - CARDIOTOXICITY [None]
  - NEUROTOXICITY [None]
